FAERS Safety Report 4323204-5 (Version None)
Quarter: 2004Q1

REPORT INFORMATION
  Report Type: 
  Country: None (occurrence: None)
  Receive Date: 20040322
  Receipt Date: 20040311
  Transmission Date: 20041129
  Serious: Yes (Other)
  Sender: FDA-Public Use
  Company Number: US-JNJFOC-20040302839

PATIENT

DRUGS (1)
  1. REOPRO [Suspect]
     Indication: CORONARY ARTERY SURGERY
     Dosage: INTRAVENOUS
     Route: 042

REACTIONS (2)
  - OBSTRUCTION [None]
  - POST PROCEDURAL COMPLICATION [None]
